FAERS Safety Report 23470902 (Version 1)
Quarter: 2024Q1

REPORT INFORMATION
  Report Type: Spontaneous
  Country: CA (occurrence: CA)
  Receive Date: 20240202
  Receipt Date: 20240202
  Transmission Date: 20240410
  Serious: Yes (Hospitalization)
  Sender: FDA-Public Use
  Company Number: CA-FreseniusKabi-FK202401781

PATIENT
  Age: 67 Year
  Sex: Female

DRUGS (2)
  1. ETOPOSIDE [Suspect]
     Active Substance: ETOPOSIDE
     Indication: Product used for unknown indication
     Dosage: DOSAGE FORM: LIQUID INTRAVENOUS
     Route: 042
  2. CISPLATIN INJECTION, BP SINGLE  DOSE VIALS.10MG/10ML AND 50MG/50ML.PRE [Concomitant]
     Indication: Product used for unknown indication
     Dosage: FORM OF ADMIN: SOLUTION INTRAVENOUS?ROUTE OF ADMIN: INTRAVENOUS

REACTIONS (3)
  - Acute coronary syndrome [Recovering/Resolving]
  - Acute myocardial infarction [Recovering/Resolving]
  - Product quality issue [Recovering/Resolving]
